FAERS Safety Report 22272250 (Version 1)
Quarter: 2023Q2

REPORT INFORMATION
  Report Type: Spontaneous
  Country: CA (occurrence: CA)
  Receive Date: 20230502
  Receipt Date: 20230502
  Transmission Date: 20230721
  Serious: Yes (Other)
  Sender: FDA-Public Use
  Company Number: CA-AUROBINDO-AUR-APL-2023-033720

PATIENT
  Age: 71 Year
  Sex: Male

DRUGS (10)
  1. TERBINAFINE [Suspect]
     Active Substance: TERBINAFINE
     Indication: Trichophytosis
     Dosage: 250 MILLIGRAM
     Route: 048
  2. TERBINAFINE [Suspect]
     Active Substance: TERBINAFINE
     Indication: Fungal infection
  3. BETAMETHASONE [Concomitant]
     Active Substance: BETAMETHASONE
     Indication: Trichophytosis
     Dosage: UNK
     Route: 065
  4. BETAMETHASONE [Concomitant]
     Active Substance: BETAMETHASONE
     Indication: Fungal infection
  5. BETAMETHASONE [Concomitant]
     Active Substance: BETAMETHASONE
     Indication: Trichophytosis
     Dosage: UNK
     Route: 065
  6. BETAMETHASONE [Concomitant]
     Active Substance: BETAMETHASONE
     Indication: Fungal infection
  7. CLOBETASOL [Concomitant]
     Active Substance: CLOBETASOL
     Indication: Trichophytosis
     Dosage: UNK
     Route: 065
  8. CLOBETASOL [Concomitant]
     Active Substance: CLOBETASOL
     Indication: Fungal infection
  9. FLUCONAZOLE [Concomitant]
     Active Substance: FLUCONAZOLE
     Indication: Trichophytosis
     Dosage: 150 MILLIGRAM, ONCE A DAY
     Route: 048
  10. FLUCONAZOLE [Concomitant]
     Active Substance: FLUCONAZOLE
     Indication: Fungal infection
     Dosage: 150 MILLIGRAM, EVERY WEEK
     Route: 048

REACTIONS (1)
  - Pathogen resistance [Unknown]
